FAERS Safety Report 22644239 (Version 1)
Quarter: 2023Q2

REPORT INFORMATION
  Report Type: Spontaneous
  Country: NL (occurrence: NL)
  Receive Date: 20230627
  Receipt Date: 20230627
  Transmission Date: 20230722
  Serious: Yes (Other)
  Sender: FDA-Public Use
  Company Number: NL-SA-SAC20230626001191

PATIENT
  Sex: Male

DRUGS (1)
  1. TOUJEO [Suspect]
     Active Substance: INSULIN GLARGINE
     Dosage: UNK UNK, Q12H

REACTIONS (4)
  - Brain injury [Unknown]
  - Blood glucose fluctuation [Unknown]
  - Mental disorder [Unknown]
  - Inappropriate schedule of product administration [Unknown]
